FAERS Safety Report 25705101 (Version 1)
Quarter: 2025Q3

REPORT INFORMATION
  Report Type: Spontaneous
  Country: US (occurrence: None)
  Receive Date: 20250819
  Receipt Date: 20250819
  Transmission Date: 20251021
  Serious: Yes (Hospitalization)
  Sender: FDA-CTU
  Company Number: None

PATIENT
  Sex: Male

DRUGS (2)
  1. COLISTIMETHATE [Suspect]
     Active Substance: COLISTIMETHATE SODIUM
     Dates: start: 20250702
  2. STERILE WATER FOR INJECTION [Concomitant]
     Active Substance: WATER

REACTIONS (3)
  - Drug hypersensitivity [None]
  - Blister [None]
  - Dyspnoea [None]
